FAERS Safety Report 21446325 (Version 1)
Quarter: 2022Q4

REPORT INFORMATION
  Report Type: Spontaneous
  Country: US (occurrence: US)
  Receive Date: 20221012
  Receipt Date: 20221012
  Transmission Date: 20230113
  Serious: No
  Sender: FDA-Public Use
  Company Number: US-SA-SAC20221005000370

PATIENT
  Sex: Male

DRUGS (2)
  1. ELOCTATE [Suspect]
     Active Substance: EFMOROCTOCOG ALFA
  2. ELOCTATE [Suspect]
     Active Substance: EFMOROCTOCOG ALFA

REACTIONS (1)
  - Oropharyngeal pain [Unknown]
